FAERS Safety Report 4403524-6 (Version None)
Quarter: 2004Q3

REPORT INFORMATION
  Report Type: 
  Country: None (occurrence: None)
  Receive Date: 20040715
  Receipt Date: 20040706
  Transmission Date: 20050211
  Serious: Yes (Hospitalization)
  Sender: FDA-Public Use
  Company Number: US-JNJFOC-20040608489

PATIENT
  Age: 54 Year
  Sex: Male

DRUGS (22)
  1. DURAGESIC [Suspect]
     Indication: PAIN
     Dosage: 50 UG/HR, 1 IN 72 HOUR, TRANSDERMAL
     Route: 062
     Dates: start: 20040101
  2. ATIVAN [Concomitant]
  3. LIPITOR [Concomitant]
  4. REQUIP [Concomitant]
  5. PROMETHAZINE [Concomitant]
  6. LASIX [Concomitant]
  7. STALEVO (CARBIDOPA) [Concomitant]
  8. IBUPROFEN [Concomitant]
  9. ZOLOFT [Concomitant]
  10. PREVACID [Concomitant]
  11. BENTYL [Concomitant]
  12. POTASSIUM (POTASSIUM) [Concomitant]
  13. ACETYLSALICYLIC ACID SRT [Concomitant]
  14. SYNTHYROID (LEVOTHYROXINE SODIUM) [Concomitant]
  15. XANAX [Concomitant]
  16. PLAVIX [Concomitant]
  17. RANITIDINE [Concomitant]
  18. MONOPRIL [Concomitant]
  19. ATENOLOL [Concomitant]
  20. KEPPRA [Concomitant]
  21. AVANDIA [Concomitant]
  22. NOVOLIN 70/30 (HUMAN MIXTARD) [Concomitant]

REACTIONS (3)
  - CARDIAC FAILURE CONGESTIVE [None]
  - DRUG EFFECT DECREASED [None]
  - MEDICAL DEVICE COMPLICATION [None]
